FAERS Safety Report 6241980-1 (Version None)
Quarter: 2009Q2

REPORT INFORMATION
  Report Type: 
  Country: None (occurrence: None)
  Receive Date: 20090622
  Receipt Date: 20090604
  Transmission Date: 20091009
  Serious: Yes (Death)
  Sender: FDA-Public Use
  Company Number: 2009AL002023

PATIENT
  Age: 63 Year
  Sex: Male

DRUGS (13)
  1. DIGOXIN [Suspect]
     Dosage: 0.25MG, PO
     Route: 048
  2. AMLODIPINE [Concomitant]
  3. XOPENEX [Concomitant]
  4. ATROVENT [Concomitant]
  5. PROPOXYPENE [Concomitant]
  6. GLIPIZIDE [Concomitant]
  7. CEPHALEXIN [Concomitant]
  8. PLAVIX [Concomitant]
  9. CAPTOPRIL [Concomitant]
  10. LEVAQUIN [Concomitant]
  11. SPRINOLACTONE [Concomitant]
  12. LIPITOR [Concomitant]
  13. METFORMIN [Concomitant]

REACTIONS (23)
  - ANGINA PECTORIS [None]
  - ANOREXIA [None]
  - ASTHENIA [None]
  - BLOOD PRESSURE SYSTOLIC INCREASED [None]
  - CARDIAC ARREST [None]
  - CARDIAC FAILURE CONGESTIVE [None]
  - CARDIOACTIVE DRUG LEVEL INCREASED [None]
  - CARDIOGENIC SHOCK [None]
  - CELLULITIS [None]
  - DIARRHOEA [None]
  - ECONOMIC PROBLEM [None]
  - EMOTIONAL DISORDER [None]
  - ERYTHEMA [None]
  - FAMILY STRESS [None]
  - HYPERKALAEMIA [None]
  - HYPONATRAEMIA [None]
  - INJURY [None]
  - MYOCARDIAL INFARCTION [None]
  - NAUSEA [None]
  - PAIN [None]
  - PARTNER STRESS [None]
  - VOMITING [None]
  - WOUND INFECTION [None]
